FAERS Safety Report 25175489 (Version 1)
Quarter: 2025Q2

REPORT INFORMATION
  Report Type: Spontaneous
  Country: PL (occurrence: PL)
  Receive Date: 20250408
  Receipt Date: 20250408
  Transmission Date: 20250716
  Serious: Yes (Hospitalization, Other)
  Sender: BRISTOL MYERS SQUIBB
  Company Number: PL-EGIS-HUN-2021-1170

PATIENT
  Age: 83 Year
  Sex: Female
  Weight: 91 kg

DRUGS (38)
  1. ELIQUIS [Suspect]
     Active Substance: APIXABAN
     Indication: Cerebrovascular accident prophylaxis
     Dosage: 10 MILLIGRAM, QD
     Dates: start: 20180207
  2. FELODIPINE [Suspect]
     Active Substance: FELODIPINE
     Indication: Hypertension
  3. OMEPRAZOLE [Suspect]
     Active Substance: OMEPRAZOLE
     Indication: Product used for unknown indication
     Route: 048
  4. METOPROLOL [Suspect]
     Active Substance: METOPROLOL
     Indication: Product used for unknown indication
     Dosage: 100 MG, 1-0-1
     Route: 048
  5. DAPAGLIFLOZIN [Suspect]
     Active Substance: DAPAGLIFLOZIN
     Indication: Ill-defined disorder
     Dosage: 10 MILLIGRAM, QD
  6. ESOMEPRAZOLE [Suspect]
     Active Substance: ESOMEPRAZOLE
     Indication: Reflux laryngitis
     Dosage: 40 MILLIGRAM, QD
  7. ASTRAZENECA COVID-19 VACCINE [Suspect]
     Active Substance: AZD-1222
     Indication: COVID-19 immunisation
     Dates: start: 20210208
  8. HYDROXYZINE [Suspect]
     Active Substance: HYDROXYZINE HYDROCHLORIDE
     Indication: Product used for unknown indication
  9. ALLOPURINOL [Suspect]
     Active Substance: ALLOPURINOL
     Indication: Product used for unknown indication
     Dosage: 1-0-0
     Route: 048
  10. ATORVASTATIN [Suspect]
     Active Substance: ATORVASTATIN
     Indication: Product used for unknown indication
     Dosage: 20 MG, 0-0-1
  11. BETAHISTINE [Suspect]
     Active Substance: BETAHISTINE
     Indication: Product used for unknown indication
     Dosage: 24 MG, 0-1-0
  12. SPIRONOLACTONE [Suspect]
     Active Substance: SPIRONOLACTONE
     Indication: Product used for unknown indication
     Dosage: 0-1-0, 100 MG
  13. ACETAMINOPHEN [Suspect]
     Active Substance: ACETAMINOPHEN
     Indication: Product used for unknown indication
     Dosage: 0-0-1
  14. HYDROCHLOROTHIAZIDE [Suspect]
     Active Substance: HYDROCHLOROTHIAZIDE
     Indication: Product used for unknown indication
     Dosage: 1-0-0
  15. POTASSIUM CHLORIDE [Suspect]
     Active Substance: POTASSIUM CHLORIDE
     Indication: Product used for unknown indication
  16. LEVOTHYROXINE [Suspect]
     Active Substance: LEVOTHYROXINE
     Indication: Product used for unknown indication
     Dosage: 125 MILLIGRAM, QD
     Route: 048
  17. ALBUTEROL [Suspect]
     Active Substance: ALBUTEROL
     Indication: Product used for unknown indication
  18. DABIGATRAN [Suspect]
     Active Substance: DABIGATRAN
     Indication: Product used for unknown indication
     Dosage: 1-0-1
  19. DEXTROSE\NIKETHAMIDE [Suspect]
     Active Substance: DEXTROSE\NIKETHAMIDE
     Indication: Product used for unknown indication
  20. GLICLAZIDE [Suspect]
     Active Substance: GLICLAZIDE
     Indication: Product used for unknown indication
     Dosage: 1-1-1
  21. POTASSIUM CHLORIDE [Suspect]
     Active Substance: POTASSIUM CHLORIDE
     Indication: Product used for unknown indication
  22. LANSOPRAZOLE [Suspect]
     Active Substance: LANSOPRAZOLE
     Indication: Product used for unknown indication
     Dosage: 10 MILLIGRAM, QD
     Dates: start: 20180207
  23. ZOCOR [Suspect]
     Active Substance: SIMVASTATIN
     Indication: Product used for unknown indication
     Dosage: 40 MILLIGRAM, QD
  24. BISOPROLOL [Suspect]
     Active Substance: BISOPROLOL
     Indication: Cerebrovascular accident prophylaxis
     Dosage: 5 MILLIGRAM, QD
     Dates: start: 20180207
  25. CETIRIZINE [Suspect]
     Active Substance: CETIRIZINE HYDROCHLORIDE
     Indication: Product used for unknown indication
     Dosage: 10 MILLIGRAM, QD
     Route: 048
  26. LINAGLIPTIN [Suspect]
     Active Substance: LINAGLIPTIN
     Indication: Product used for unknown indication
     Dosage: 5 MILLIGRAM, QD
  27. ISOSORBIDE DINITRATE [Suspect]
     Active Substance: ISOSORBIDE DINITRATE
     Indication: Product used for unknown indication
     Dosage: 50 MILLIGRAM, QD
     Route: 048
  28. DIGOXIN [Suspect]
     Active Substance: DIGOXIN
     Indication: Cerebrovascular accident prophylaxis
     Dosage: 62.5 MILLIGRAM, QD
  29. NAPROXEN [Suspect]
     Active Substance: NAPROXEN
     Indication: Product used for unknown indication
  30. CANDESARTAN CILEXETIL [Suspect]
     Active Substance: CANDESARTAN CILEXETIL
     Indication: Atrial fibrillation
     Dosage: 2 MILLIGRAM, QD
     Route: 048
  31. RAMIPRIL [Interacting]
     Active Substance: RAMIPRIL
     Indication: Product used for unknown indication
     Dosage: 1-0-0
     Route: 048
  32. CITALOPRAM [Interacting]
     Active Substance: CITALOPRAM
     Indication: Product used for unknown indication
     Dosage: 1-0-0
  33. ALPRAZOLAM [Interacting]
     Active Substance: ALPRAZOLAM
     Indication: Depression
  34. ZOLPIDEM [Interacting]
     Active Substance: ZOLPIDEM TARTRATE
     Indication: Depression
     Dosage: 0-0-1
  35. ISOSORBIDE MONONITRATE [Interacting]
     Active Substance: ISOSORBIDE MONONITRATE
     Indication: Coronary artery disease
     Route: 048
  36. FUROSEMIDE [Interacting]
     Active Substance: FUROSEMIDE
     Indication: Product used for unknown indication
  37. METOCLOPRAMIDE [Interacting]
     Active Substance: METOCLOPRAMIDE
     Indication: Constipation
     Route: 048
  38. TRAMADOL [Interacting]
     Active Substance: TRAMADOL
     Indication: Product used for unknown indication

REACTIONS (67)
  - Drug dependence [Unknown]
  - Diabetes mellitus inadequate control [Unknown]
  - Hypotension [Unknown]
  - Fall [Unknown]
  - Hyponatraemia [Unknown]
  - Cognitive disorder [Recovered/Resolved]
  - Depression [Unknown]
  - Osteoporosis [Unknown]
  - Mobility decreased [Unknown]
  - Hallucination [Unknown]
  - Malaise [Unknown]
  - Pericarditis [Not Recovered/Not Resolved]
  - Cardiospasm [Not Recovered/Not Resolved]
  - Atrial tachycardia [Unknown]
  - Muscular weakness [Unknown]
  - Anosmia [Recovering/Resolving]
  - Lip swelling [Not Recovered/Not Resolved]
  - Feeling abnormal [Unknown]
  - Dry skin [Not Recovered/Not Resolved]
  - Pain [Unknown]
  - Eye pruritus [Unknown]
  - Amnesia [Recovering/Resolving]
  - Diarrhoea [Unknown]
  - Facial pain [Unknown]
  - Dyspnoea [Unknown]
  - Palpitations [Unknown]
  - Chest pain [Unknown]
  - Tachycardia [Unknown]
  - Abdominal discomfort [Unknown]
  - Pyrexia [Unknown]
  - Angioedema [Unknown]
  - Ventricular tachycardia [Not Recovered/Not Resolved]
  - Pruritus [Recovering/Resolving]
  - Subarachnoid haemorrhage [Recovered/Resolved]
  - Headache [Not Recovered/Not Resolved]
  - Nausea [Unknown]
  - Vomiting [Recovered/Resolved]
  - Disturbance in attention [Recovered/Resolved]
  - Dizziness [Unknown]
  - Palmoplantar keratoderma [Not Recovered/Not Resolved]
  - Migraine [Not Recovered/Not Resolved]
  - Tinnitus [Not Recovered/Not Resolved]
  - Peripheral swelling [Unknown]
  - Pain of skin [Unknown]
  - Tension headache [Not Recovered/Not Resolved]
  - Arthralgia [Unknown]
  - Alopecia [Recovered/Resolved with Sequelae]
  - Memory impairment [Recovering/Resolving]
  - Sleep terror [Unknown]
  - Pruritus genital [Unknown]
  - Visual impairment [Not Recovered/Not Resolved]
  - Diplopia [Not Recovered/Not Resolved]
  - Blindness [Not Recovered/Not Resolved]
  - Vasculitis [Not Recovered/Not Resolved]
  - Transient ischaemic attack [Recovered/Resolved]
  - COVID-19 [Unknown]
  - Heart rate increased [Unknown]
  - Back pain [Unknown]
  - Abdominal pain upper [Unknown]
  - Muscle twitching [Unknown]
  - Hyperhidrosis [Unknown]
  - Rash papular [Unknown]
  - Dehydration [Unknown]
  - Anxiety [Unknown]
  - Insomnia [Unknown]
  - Carotid artery occlusion [Recovered/Resolved]
  - Myocardial infarction [Recovered/Resolved]

NARRATIVE: CASE EVENT DATE: 20210315
